FAERS Safety Report 13394114 (Version 2)
Quarter: 2017Q2

REPORT INFORMATION
  Report Type: Spontaneous
  Country: US (occurrence: US)
  Receive Date: 20170401
  Receipt Date: 20170503
  Transmission Date: 20170830
  Serious: Yes (Hospitalization)
  Sender: FDA-Public Use
  Company Number: US-TESARO INC.-TS50-00104-2017USA

PATIENT
  Sex: Female

DRUGS (2)
  1. VARUBI [Suspect]
     Active Substance: ROLAPITANT
     Indication: VOMITING
  2. VARUBI [Suspect]
     Active Substance: ROLAPITANT
     Indication: NAUSEA
     Dosage: TWO TABLETS EVERY 2 WEEKS
     Route: 048
     Dates: start: 20161228

REACTIONS (2)
  - Abdominal abscess [Unknown]
  - Malaise [Unknown]
